FAERS Safety Report 6815375-3 (Version None)
Quarter: 2010Q3

REPORT INFORMATION
  Report Type: 
  Country: None (occurrence: None)
  Receive Date: 20100702
  Receipt Date: 20100623
  Transmission Date: 20110219
  Serious: Yes (Other)
  Sender: FDA-Public Use
  Company Number: GXKR2010US07033

PATIENT
  Age: 16 Year
  Sex: Male

DRUGS (1)
  1. DEXAMETHASONE (NGX) [Suspect]
     Indication: ACUTE LYMPHOCYTIC LEUKAEMIA
     Dosage: 12 MG/DAY ON DAYS 1-5 AND 29-33 OF EACH CYCLE
     Route: 065

REACTIONS (12)
  - ABNORMAL BEHAVIOUR [None]
  - AFFECT LABILITY [None]
  - AFFECTIVE DISORDER [None]
  - DELUSIONAL DISORDER, UNSPECIFIED TYPE [None]
  - FLIGHT OF IDEAS [None]
  - INSOMNIA [None]
  - IRRITABILITY [None]
  - MANIA [None]
  - PERSONALITY CHANGE [None]
  - PSYCHOTIC DISORDER [None]
  - SLEEP DISORDER [None]
  - THINKING ABNORMAL [None]
